FAERS Safety Report 6153004-5 (Version None)
Quarter: 2009Q2

REPORT INFORMATION
  Report Type: 
  Country: None (occurrence: None)
  Receive Date: 20090413
  Receipt Date: 20090406
  Transmission Date: 20091009
  Serious: Yes (Hospitalization)
  Sender: FDA-Public Use
  Company Number: A0777128A

PATIENT
  Sex: Male

DRUGS (5)
  1. TRIZIVIR [Suspect]
     Indication: HIV INFECTION
     Route: 048
     Dates: start: 20070101, end: 20080101
  2. PRILOSEC [Concomitant]
  3. HYDROCODONE BITARTRATE [Concomitant]
  4. ALLEGRA [Concomitant]
  5. HYDROCHLOROTHIAZIDE [Concomitant]

REACTIONS (9)
  - APHONIA [None]
  - BLOOD PRESSURE INCREASED [None]
  - CHOKING [None]
  - DRY THROAT [None]
  - DYSPNOEA [None]
  - EPISTAXIS [None]
  - HEADACHE [None]
  - LARYNGEAL INJURY [None]
  - PARALYSIS [None]
